FAERS Safety Report 21587221 (Version 1)
Quarter: 2022Q4

REPORT INFORMATION
  Report Type: Spontaneous
  Country: US (occurrence: US)
  Receive Date: 20221114
  Receipt Date: 20221114
  Transmission Date: 20230112
  Serious: No
  Sender: FDA-Public Use
  Company Number: US-ALVOGEN-2022-ALVOGEN-120949

PATIENT
  Age: 18 Day

DRUGS (4)
  1. HYDROCODONE BITARTRATE [Suspect]
     Active Substance: HYDROCODONE BITARTRATE
     Indication: Nipple pain
     Dosage: DECREASED DOSE BY ONE-HALF
     Route: 063
  2. HYDROCODONE BITARTRATE [Suspect]
     Active Substance: HYDROCODONE BITARTRATE
     Indication: Nipple pain
     Route: 063
  3. ACETAMINOPHEN [Suspect]
     Active Substance: ACETAMINOPHEN
     Indication: Nipple pain
     Dosage: DECREASED DOSE BY ONE-HALF
     Route: 063
  4. ACETAMINOPHEN [Suspect]
     Active Substance: ACETAMINOPHEN
     Indication: Nipple pain
     Route: 063

REACTIONS (2)
  - Hypersomnia [Recovered/Resolved]
  - Exposure via breast milk [Unknown]
